FAERS Safety Report 7926207-4 (Version None)
Quarter: 2011Q4

REPORT INFORMATION
  Report Type: 
  Country: None (occurrence: None)
  Receive Date: 20111118
  Receipt Date: 20110419
  Transmission Date: 20120403
  Serious: Yes (Hospitalization)
  Sender: FDA-Public Use
  Company Number: US-AMGEN-USASP2011020546

PATIENT
  Age: 71 Year
  Sex: Male

DRUGS (2)
  1. ENBREL [Suspect]
     Indication: ARTHRITIS
     Dosage: 50 MG, QWK
  2. ALLOPURINOL [Concomitant]
     Dosage: UNK

REACTIONS (4)
  - MENINGITIS [None]
  - DIABETES MELLITUS [None]
  - BLOOD GLUCOSE INCREASED [None]
  - RASH ERYTHEMATOUS [None]
